FAERS Safety Report 15209108 (Version 1)
Quarter: 2018Q3

REPORT INFORMATION
  Report Type: Spontaneous
  Country: US (occurrence: US)
  Receive Date: 20180727
  Receipt Date: 20180727
  Transmission Date: 20181010
  Serious: No
  Sender: FDA-Public Use
  Company Number: US-BRACCO-2018US02937

PATIENT
  Age: 48 Year
  Sex: Female

DRUGS (1)
  1. READI?CAT [Suspect]
     Active Substance: BARIUM SULFATE
     Indication: COMPUTERISED TOMOGRAM
     Dosage: 2 BOTTLES OF 450 ML EACH
     Route: 048
     Dates: start: 20180214, end: 20180214

REACTIONS (1)
  - Erythema [Recovered/Resolved]

NARRATIVE: CASE EVENT DATE: 20180214
